FAERS Safety Report 9839856 (Version 1)
Quarter: 2014Q1

REPORT INFORMATION
  Report Type: Spontaneous
  Country: NO (occurrence: NO)
  Receive Date: 20140124
  Receipt Date: 20140124
  Transmission Date: 20141002
  Serious: Yes (Hospitalization)
  Sender: FDA-Public Use
  Company Number: PHHY2014NO006955

PATIENT
  Sex: Female

DRUGS (1)
  1. VOLTAREN [Suspect]
     Dosage: UNK UKN, UNK

REACTIONS (4)
  - Joint crepitation [Recovered/Resolved]
  - Malaise [Recovered/Resolved]
  - Eczema [Recovered/Resolved]
  - Abdominal discomfort [Recovered/Resolved]
